FAERS Safety Report 4668764-X (Version None)
Quarter: 2005Q2

REPORT INFORMATION
  Report Type: 
  Country: None (occurrence: None)
  Receive Date: 20050519
  Receipt Date: 20050510
  Transmission Date: 20051028
  Serious: Yes (Life-Threatening, Hospitalization)
  Sender: FDA-Public Use
  Company Number: 2005053804

PATIENT
  Age: 65 Year
  Sex: Female

DRUGS (7)
  1. PRAZOSIN GITS [Suspect]
     Indication: ILL-DEFINED DISORDER
     Dosage: 5 MG (5 MG, 1 IN 1 24 HR), ORAL
     Route: 048
     Dates: end: 20040626
  2. LEVOTHYROXINE SODIUM [Suspect]
     Indication: ILL-DEFINED DISORDER
     Dosage: 150 MCG (150 MCG, EVERY DAY), ORAL
     Route: 048
     Dates: end: 20040626
  3. BISOPROLOL (BISOPROLOL) [Suspect]
     Indication: ILL-DEFINED DISORDER
     Dosage: 10 MG (10 MG, 1 IN 24 HR), ORAL
     Route: 048
     Dates: end: 20040626
  4. ATARAX [Suspect]
     Indication: ILL-DEFINED DISORDER
     Dosage: 25 MG (25 MG, 1 IN 24 HR), ORAL
     Route: 048
     Dates: end: 20040626
  5. CORDARONE [Suspect]
     Indication: ILL-DEFINED DISORDER
     Dosage: (UNK, BID), ORAL
     Route: 048
     Dates: end: 20040626
  6. INEXIUM (ESOMEPRAZOLE MAGNESIUM) [Suspect]
     Indication: ILL-DEFINED DISORDER
     Dosage: 80 MG (40 MG, 2 IN 24 HR), ORAL
     Route: 048
     Dates: end: 20040626
  7. SODIUM CHLORIDE COMPOUND INJECTION (SODIUM CHLORIDE COMPOUND INJECTION [Suspect]
     Indication: ILL-DEFINED DISORDER
     Dates: end: 20040626

REACTIONS (5)
  - CARDIO-RESPIRATORY ARREST [None]
  - DIALYSIS [None]
  - HYPERKALAEMIA [None]
  - OBSTRUCTIVE UROPATHY [None]
  - RENAL FAILURE ACUTE [None]
